FAERS Safety Report 17731760 (Version 2)
Quarter: 2020Q4

REPORT INFORMATION
  Report Type: Report from Study
  Country: US (occurrence: US)
  Receive Date: 20200501
  Receipt Date: 20201119
  Transmission Date: 20210113
  Serious: No
  Sender: FDA-Public Use
  Company Number: US-INCYTE CORPORATION-2020IN000277

PATIENT

DRUGS (12)
  1. COMPAZINE [PROCHLORPERAZINE EDISYLATE] [Concomitant]
     Active Substance: PROCHLORPERAZINE EDISYLATE
     Indication: NAUSEA
     Dosage: 10 MILLIGRAM
     Route: 065
     Dates: start: 20171201, end: 20180413
  2. INFLUENZA VACCINE [Concomitant]
     Active Substance: INFLUENZA VIRUS VACCINE
     Indication: INFLUENZA IMMUNISATION
     Dosage: UNK
     Route: 065
     Dates: start: 20181003, end: 20181003
  3. HYDREA [Concomitant]
     Active Substance: HYDROXYUREA
     Indication: ESSENTIAL THROMBOCYTHAEMIA
     Dosage: 500 MILLIGRAM, BID
     Route: 065
     Dates: start: 20171130, end: 20171212
  4. HYDREA [Concomitant]
     Active Substance: HYDROXYUREA
     Dosage: 500 MILLIGRAM, BID
     Route: 065
     Dates: start: 20171212, end: 20180810
  5. DACOGEN [Concomitant]
     Active Substance: DECITABINE
     Indication: MYELODYSPLASTIC SYNDROME
     Dosage: 29.4 MILLIGRAM
     Route: 065
     Dates: start: 20190225, end: 20190226
  6. VIDAZA [Concomitant]
     Active Substance: AZACITIDINE
     Indication: MYELODYSPLASTIC SYNDROME
     Dosage: 75 MG/M2
     Route: 065
     Dates: start: 20180420, end: 20180509
  7. NEULASTA [Concomitant]
     Active Substance: PEGFILGRASTIM
     Indication: MYELODYSPLASTIC SYNDROME
     Dosage: 6 MILLIGRAM, Q28D X3 CYCLES V 4.0
     Route: 065
     Dates: start: 20180502
  8. NEULASTA [Concomitant]
     Active Substance: PEGFILGRASTIM
     Indication: NEUTROPENIA
  9. JAKAFI [Suspect]
     Active Substance: RUXOLITINIB
     Indication: ESSENTIAL THROMBOCYTHAEMIA
     Dosage: 20 MILLIGRAM, BID
     Route: 065
     Dates: start: 20180321
  10. VENETOCLAX. [Concomitant]
     Active Substance: VENETOCLAX
     Indication: ACUTE MYELOID LEUKAEMIA
     Dosage: DAY 1-100MG; DAY 2-200MG; DAY 3-300MG; DAY 4-400MG; DAY 5-30-400MG DAILY
     Route: 065
     Dates: start: 20181220, end: 20190125
  11. SYNTHROID [Concomitant]
     Active Substance: LEVOTHYROXINE SODIUM
     Indication: HYPOTHYROIDISM
     Dosage: 0.088 MILLIGRAM, QD
     Route: 065
     Dates: start: 20171130
  12. VENETOCLAX. [Concomitant]
     Active Substance: VENETOCLAX
     Dosage: 100 MILLIGRAM, BID
     Route: 065
     Dates: start: 20190125

REACTIONS (3)
  - Gout [Recovered/Resolved]
  - Nausea [Recovered/Resolved]
  - Herpes zoster [Not Recovered/Not Resolved]

NARRATIVE: CASE EVENT DATE: 20180420
